FAERS Safety Report 7833276-9 (Version None)
Quarter: 2011Q4

REPORT INFORMATION
  Report Type: 
  Country: None (occurrence: None)
  Receive Date: 20111024
  Receipt Date: 20111012
  Transmission Date: 20120403
  Serious: Yes (Other)
  Sender: FDA-Public Use
  Company Number: DE-PFIZER INC-2011235337

PATIENT
  Age: 75 Year
  Sex: Male

DRUGS (4)
  1. LAIF [Concomitant]
     Dosage: 900 MG, UNK
  2. PANTOPRAZOLE SODIUM [Suspect]
     Indication: GASTROOESOPHAGEAL REFLUX DISEASE
     Dosage: 40 MG, 1X/DAY
     Route: 048
     Dates: start: 20110608, end: 20110101
  3. L-ARGININE [Concomitant]
  4. PANTOPRAZOLE SODIUM [Suspect]
     Dosage: 20 MG, 1X/DAY
     Route: 048
     Dates: start: 20110101

REACTIONS (4)
  - DRY MOUTH [None]
  - CATARACT [None]
  - GLAUCOMA [None]
  - HYPERHIDROSIS [None]
